FAERS Safety Report 4621818-6 (Version None)
Quarter: 2005Q1

REPORT INFORMATION
  Report Type: 
  Country: None (occurrence: None)
  Receive Date: 20050329
  Receipt Date: 20050316
  Transmission Date: 20050727
  Serious: Yes (Other)
  Sender: FDA-Public Use
  Company Number: 200512134US

PATIENT
  Age: 17 Year
  Sex: Male

DRUGS (3)
  1. KETEK [Suspect]
     Route: 048
     Dates: start: 20050315
  2. PHENERGAN EXPECTORANT W/ CODEINE [Concomitant]
     Dosage: DOSE: UNK
     Dates: start: 20050315
  3. ZITHROMAX [Concomitant]
     Indication: SINUSITIS
     Dosage: DOSE: UNK

REACTIONS (6)
  - CHEST PAIN [None]
  - HYPERTROPHIC OBSTRUCTIVE CARDIOMYOPATHY [None]
  - JOINT INJURY [None]
  - LOSS OF CONSCIOUSNESS [None]
  - ROAD TRAFFIC ACCIDENT [None]
  - SYNCOPE [None]
